FAERS Safety Report 5259893-0 (Version None)
Quarter: 2007Q1

REPORT INFORMATION
  Report Type: 
  Country: None (occurrence: None)
  Receive Date: 20061208
  Receipt Date: 20060622
  Transmission Date: 20070707
  Serious: Yes (Other)
  Sender: FDA-Public Use
  Company Number: USA-2006-0024494

PATIENT
  Sex: Male

DRUGS (1)
  1. OXYCONTIN [Suspect]
     Indication: BACK INJURY
     Dosage: 10 MG, SEE TEXT

REACTIONS (4)
  - ANXIETY [None]
  - DRUG ABUSER [None]
  - DRUG DOSE OMISSION [None]
  - PAIN [None]
